FAERS Safety Report 8352983-5 (Version None)
Quarter: 2012Q2

REPORT INFORMATION
  Report Type: 
  Country: None (occurrence: None)
  Receive Date: 20120511
  Receipt Date: 20120507
  Transmission Date: 20120825
  Serious: Yes (Hospitalization)
  Sender: FDA-Public Use
  Company Number: NL-MEDIMMUNE-MEDI-0014334

PATIENT
  Sex: Male
  Weight: 4.58 kg

DRUGS (5)
  1. SPIRONOLACTONE [Concomitant]
     Indication: BRONCHOPULMONARY DYSPLASIA
  2. HYDROCHLOROTHIAZIDE [Concomitant]
     Indication: BRONCHOPULMONARY DYSPLASIA
  3. FERROFUMARATE [Concomitant]
  4. SYNAGIS [Suspect]
     Indication: PREMATURE BABY
     Route: 030
     Dates: start: 20111129, end: 20111129
  5. SYNAGIS [Suspect]
     Route: 030
     Dates: start: 20111227, end: 20120417

REACTIONS (5)
  - BRONCHITIS [None]
  - RESPIRATORY SYNCYTIAL VIRUS BRONCHIOLITIS [None]
  - DYSPNOEA [None]
  - COUGH [None]
  - RESPIRATORY SYNCYTIAL VIRUS INFECTION [None]
